FAERS Safety Report 11855168 (Version 1)
Quarter: 2015Q4

REPORT INFORMATION
  Report Type: Spontaneous
  Country: TR (occurrence: TR)
  Receive Date: 20151221
  Receipt Date: 20151221
  Transmission Date: 20160305
  Serious: Yes (Other)
  Sender: FDA-Public Use
  Company Number: TR-ACTAVIS-2015-14015

PATIENT
  Age: 34 Year
  Sex: Male

DRUGS (2)
  1. DOXORUBICIN (UNKNOWN) [Suspect]
     Active Substance: DOXORUBICIN
     Indication: ANGIOSARCOMA
     Dosage: 60 MG/M2, 1/ THREE WEEKS (ON DAY 1)
     Route: 065
  2. IFOSFAMIDE W/MESNA [Suspect]
     Active Substance: IFOSFAMIDE\MESNA
     Indication: ANGIOSARCOMA
     Dosage: 1800 MG/M2, CYCLICAL (ON DAYS 1 AND 5)
     Route: 065

REACTIONS (1)
  - Febrile neutropenia [Unknown]
